FAERS Safety Report 10363595 (Version 1)
Quarter: 2014Q3

REPORT INFORMATION
  Report Type: Spontaneous
  Country: US (occurrence: US)
  Receive Date: 20140805
  Receipt Date: 20140805
  Transmission Date: 20150326
  Serious: Yes (Other)
  Sender: FDA-Public Use
  Company Number: PHHY2014US095199

PATIENT
  Sex: Female

DRUGS (4)
  1. AZATHIOPRINE. [Suspect]
     Active Substance: AZATHIOPRINE
  2. HYDROXYCARBAMIDE [Suspect]
     Active Substance: HYDROXYUREA
     Indication: MYELODYSPLASTIC SYNDROME
  3. CLOBETASOL [Concomitant]
     Active Substance: CLOBETASOL
     Indication: WOUND INFECTION STAPHYLOCOCCAL
  4. PREDNISONE. [Suspect]
     Active Substance: PREDNISONE

REACTIONS (4)
  - Impaired healing [Unknown]
  - Superinfection [Unknown]
  - Skin ulcer [Recovered/Resolved]
  - Staphylococcal infection [Unknown]
